FAERS Safety Report 6836296-6 (Version None)
Quarter: 2010Q2

REPORT INFORMATION
  Report Type: 
  Country: None (occurrence: None)
  Receive Date: 20100624
  Receipt Date: 20100510
  Transmission Date: 20101027
  Serious: No
  Sender: FDA-Public Use
  Company Number: DKLU1062255

PATIENT
  Age: 11 Year
  Sex: Female

DRUGS (4)
  1. SABRIL [Suspect]
     Indication: CONVULSION
     Dosage: 500 MG MILLIGRAM(S), 1 IN 1 D, ORAL
     Route: 048
     Dates: start: 20100509
  2. TOPAMAX [Concomitant]
  3. TRILEPTAL [Concomitant]
  4. RAPAMUNE [Concomitant]

REACTIONS (2)
  - DYSPNOEA [None]
  - FLUSHING [None]
